FAERS Safety Report 20710631 (Version 5)
Quarter: 2022Q2

REPORT INFORMATION
  Report Type: Report from Study
  Country: AU (occurrence: AU)
  Receive Date: 20220414
  Receipt Date: 20220620
  Transmission Date: 20220721
  Serious: Yes (Hospitalization, Other)
  Sender: FDA-Public Use
  Company Number: AU-BRISTOL-MYERS SQUIBB COMPANY-2022-017676

PATIENT
  Age: 66 Year
  Sex: Male
  Weight: 61.7 kg

DRUGS (5)
  1. AZACITIDINE [Suspect]
     Active Substance: AZACITIDINE
     Indication: Myelodysplastic syndrome
     Dosage: DAYS 1-7 FOR THE FIRST 9 CALENDAR DAYS OF A 28-DAY CYCLE (75 MG/M2,1 IN 1 D)
     Route: 058
     Dates: start: 20220321
  2. VENETOCLAX [Suspect]
     Active Substance: VENETOCLAX
     Indication: Myelodysplastic syndrome
     Dosage: 14 DAYS ON, 14 DAYS OFF (400 MG,1 IN 1 D)
     Route: 048
     Dates: start: 20220321
  3. ALLOPURINOL [Concomitant]
     Active Substance: ALLOPURINOL
     Indication: Prophylaxis
     Route: 048
     Dates: start: 20220321, end: 20220328
  4. METOCLOPRAMIDE [Concomitant]
     Active Substance: METOCLOPRAMIDE
     Indication: Nausea
     Route: 048
     Dates: start: 20220323
  5. VALACYCLOVIR HYDROCHLORIDE [Concomitant]
     Active Substance: VALACYCLOVIR HYDROCHLORIDE
     Indication: Prophylaxis
     Route: 048
     Dates: start: 20220321

REACTIONS (2)
  - Drug eruption [Recovered/Resolved]
  - Infusion site thrombosis [Unknown]

NARRATIVE: CASE EVENT DATE: 20220325
